FAERS Safety Report 8784750 (Version 1)
Quarter: 2012Q4

REPORT INFORMATION
  Report Type: Spontaneous
  Country: US (occurrence: None)
  Receive Date: 20120831
  Receipt Date: 20120831
  Transmission Date: 20130627
  Serious: Yes (Life-Threatening, Other)
  Sender: FDA-Public Use
  Company Number: CRC-12-420

PATIENT
  Age: 60 Year
  Sex: Female
  Weight: 95 kg

DRUGS (8)
  1. NIMODIPINE [Suspect]
     Indication: SUBARACHNOID HEMORRHAGE
     Route: 048
  2. BUSPIRONE [Concomitant]
  3. DOCUSATE [Concomitant]
  4. HEPARIN [Concomitant]
  5. INSULIN IV DRIP-TITRATE [Concomitant]
  6. PAIN MEDS AND IV BLOOD PRESSURE MEDS [Concomitant]
  7. ZANTAC [Concomitant]
  8. SENNA [Concomitant]

REACTIONS (2)
  - Incorrect route of drug administration [None]
  - Hypotension [None]
